FAERS Safety Report 9790409 (Version 1)
Quarter: 2013Q4

REPORT INFORMATION
  Report Type: Spontaneous
  Country: CA (occurrence: CA)
  Receive Date: 20131231
  Receipt Date: 20131231
  Transmission Date: 20140711
  Serious: Yes (Other)
  Sender: FDA-Public Use
  Company Number: CA-BAXTER-2013BAX052888

PATIENT
  Age: 55 Year
  Sex: Female

DRUGS (1)
  1. PROCYTOX (CYCLOPHOSPHAMIDE) 1000MG/VIAL [Suspect]
     Indication: VASCULITIS
     Route: 065

REACTIONS (1)
  - Psychotic disorder [Unknown]
